FAERS Safety Report 9262932 (Version 1)
Quarter: 2013Q2

REPORT INFORMATION
  Report Type: Spontaneous
  Country: US (occurrence: US)
  Receive Date: 20130430
  Receipt Date: 20130430
  Transmission Date: 20140414
  Serious: Yes (Death)
  Sender: FDA-Public Use
  Company Number: US-ASTELLAS-2013US004423

PATIENT
  Age: 74 Year
  Sex: Female

DRUGS (2)
  1. PROGRAF [Suspect]
     Indication: RENAL TRANSPLANT
     Dosage: 2 MG MORNING, 3 MG EVENING
     Route: 048
     Dates: start: 20100421, end: 20130418
  2. PROGRAF [Suspect]
     Dosage: 0.5 MG, UID/QD
     Route: 048
     Dates: start: 20110428, end: 20130418

REACTIONS (1)
  - Death [Fatal]
